FAERS Safety Report 9071847 (Version 1)
Quarter: 2013Q1

REPORT INFORMATION
  Report Type: Report from Study
  Country: US (occurrence: US)
  Receive Date: 20130129
  Receipt Date: 20130129
  Transmission Date: 20140127
  Serious: No
  Sender: FDA-Public Use
  Company Number: US-ABBOTT-12P-163-0934065-00

PATIENT
  Age: 68 Year
  Sex: Female

DRUGS (9)
  1. HUMIRA 40 MG/0.8 ML PEN [Suspect]
     Indication: RHEUMATOID ARTHRITIS
     Dates: start: 20120116
  2. POTASSIUM [Concomitant]
     Indication: HYPERTENSION
     Dosage: 1 TAB TWICE A DAY
     Route: 048
  3. BUMEX [Concomitant]
     Indication: HYPERTENSION
     Dosage: 2MG ONE DAILY
     Route: 048
  4. ASPIRIN [Concomitant]
     Indication: CARDIAC DISORDER
     Dosage: 81MG ONE DAILY
     Route: 048
  5. OXYCONTIN [Concomitant]
     Indication: PAIN
  6. METHOTREXATE [Concomitant]
     Indication: RHEUMATOID ARTHRITIS
     Dosage: 5 TABLETS WEEKLY
     Route: 048
  7. NEXIUM [Concomitant]
     Indication: GASTROOESOPHAGEAL REFLUX DISEASE
     Dosage: PRN
  8. ZANTAC [Concomitant]
     Indication: GASTROOESOPHAGEAL REFLUX DISEASE
     Dosage: PRN
  9. PERCOCET [Concomitant]
     Indication: PAIN

REACTIONS (5)
  - Pyrexia [Not Recovered/Not Resolved]
  - Cough [Not Recovered/Not Resolved]
  - Feeling cold [Not Recovered/Not Resolved]
  - Nasopharyngitis [Not Recovered/Not Resolved]
  - Tremor [Not Recovered/Not Resolved]
